FAERS Safety Report 7418051-1 (Version None)
Quarter: 2011Q2

REPORT INFORMATION
  Report Type: 
  Country: None (occurrence: None)
  Receive Date: 20110415
  Receipt Date: 20110412
  Transmission Date: 20111010
  Serious: Yes (Other)
  Sender: FDA-Public Use
  Company Number: BR-ROCHE-745323

PATIENT
  Sex: Female

DRUGS (3)
  1. RIVOTRIL [Suspect]
     Indication: DEPRESSION
     Dosage: CO-INDICATION:INSOMNIA, TAKES HALF TABLET INSTEAD OF ONE TABLET DAILY (MEDICATION ERROR)
     Route: 048
     Dates: start: 20030101
  2. RIVOTRIL [Suspect]
     Route: 048
  3. EMETIRAL [Suspect]
     Indication: DEPRESSION
     Dosage: DRUG REPORTED AS EMETRIL, CO-INDICATION:MUSCLE PAIN, FIBROMYALGIA AND TENDINITIS
     Route: 065

REACTIONS (6)
  - INTERVERTEBRAL DISC PROTRUSION [None]
  - DRUG INEFFECTIVE [None]
  - SOMNOLENCE [None]
  - DRUG ADMINISTRATION ERROR [None]
  - TENDONITIS [None]
  - FIBROMYALGIA [None]
